FAERS Safety Report 14188870 (Version 1)
Quarter: 2017Q4

REPORT INFORMATION
  Report Type: Spontaneous
  Country: FR (occurrence: FR)
  Receive Date: 20171114
  Receipt Date: 20171114
  Transmission Date: 20180321
  Serious: Yes (Other)
  Sender: FDA-Public Use
  Company Number: FR-MERCK KGAA-2034082

PATIENT
  Age: 50 Year
  Sex: Female

DRUGS (3)
  1. RIVOTRIL [Concomitant]
     Active Substance: CLONAZEPAM
  2. NOVOTHYROX [Suspect]
     Active Substance: LEVOTHYROXINE SODIUM
     Indication: PRODUCT USED FOR UNKNOWN INDICATION
     Dates: start: 201708, end: 20170924
  3. TRAMADOL. [Concomitant]
     Active Substance: TRAMADOL

REACTIONS (19)
  - Contusion [None]
  - Pruritus [None]
  - Agitation [None]
  - Visual impairment [None]
  - Headache [None]
  - Feeling drunk [None]
  - Weight decreased [None]
  - Urticaria [None]
  - Muscle atrophy [None]
  - Diarrhoea [None]
  - Diabetes mellitus [None]
  - Bronchial disorder [None]
  - Vomiting [None]
  - Respiratory failure [None]
  - Amnesia [None]
  - Adrenal disorder [None]
  - Hepatic failure [None]
  - Faecaloma [None]
  - Pyrexia [None]

NARRATIVE: CASE EVENT DATE: 201708
